FAERS Safety Report 9801800 (Version 2)
Quarter: 2014Q1

REPORT INFORMATION
  Report Type: Report from Study
  Country: US (occurrence: US)
  Receive Date: 20140107
  Receipt Date: 20140210
  Transmission Date: 20141002
  Serious: Yes (Other)
  Sender: FDA-Public Use
  Company Number: PHEH2014US000484

PATIENT
  Age: 79 Year
  Sex: Female

DRUGS (9)
  1. ZOMETA [Suspect]
     Indication: PLASMA CELL MYELOMA
     Dosage: UNK UKN, EVERY OTHER MONTH
     Dates: start: 2011
  2. PREDNISONE [Concomitant]
  3. VICODIN [Concomitant]
  4. ACYCLOVIR [Concomitant]
  5. REVLIMID [Concomitant]
  6. ASPIRIN [Concomitant]
  7. VITAMIN D [Concomitant]
  8. MULTIVIT//VITAMINS NOS [Concomitant]
  9. VELCADE [Concomitant]

REACTIONS (1)
  - Light chain disease [Unknown]
